FAERS Safety Report 7961410-9 (Version None)
Quarter: 2011Q4

REPORT INFORMATION
  Report Type: 
  Country: None (occurrence: None)
  Receive Date: 20111202
  Receipt Date: 20110916
  Transmission Date: 20120403
  Serious: Yes (Life-Threatening, Hospitalization, Other)
  Sender: FDA-Public Use
  Company Number: TPA2011A02748

PATIENT
  Age: 85 Year
  Sex: Male

DRUGS (5)
  1. STAGID (METFORMIN EMBONATE) [Concomitant]
  2. LESCOL [Concomitant]
  3. LOGIMAX (FELODIPINE, METOPROLOL SUCCINATE) [Concomitant]
  4. ZOFENIL (ZOFENOPRIL) [Concomitant]
  5. ADENURIC (FEBUXOSTAT) [Suspect]
     Indication: GOUT
     Dosage: 80 MG (80 MG), ORAL
     Route: 048
     Dates: start: 20110111, end: 20110323

REACTIONS (7)
  - HEPATIC VEIN DILATATION [None]
  - ACUTE PULMONARY OEDEMA [None]
  - ANGIOPATHY [None]
  - CARDIAC FAILURE [None]
  - DILATATION ATRIAL [None]
  - ATRIAL FIBRILLATION [None]
  - AORTIC VALVE INCOMPETENCE [None]
